FAERS Safety Report 25830513 (Version 2)
Quarter: 2025Q4

REPORT INFORMATION
  Report Type: Spontaneous
  Country: US (occurrence: US)
  Receive Date: 20250922
  Receipt Date: 20251218
  Transmission Date: 20260118
  Serious: Yes (Other)
  Sender: STRIDES
  Company Number: None

PATIENT
  Age: 32 Year
  Sex: Female

DRUGS (6)
  1. FUROSEMIDE [Suspect]
     Active Substance: FUROSEMIDE
     Indication: Peripheral swelling
     Dosage: 40 MILLIGRAM, EVERY 12 HRS
     Route: 048
  2. MYCOPHENOLIC ACID [Concomitant]
     Active Substance: MYCOPHENOLIC ACID
     Indication: Systemic lupus erythematosus
     Dosage: UNK
     Route: 065
  3. METOPROLOL [Concomitant]
     Active Substance: METOPROLOL
     Indication: Hypertension
     Dosage: UNK
     Route: 065
  4. NIFEDIPINE [Concomitant]
     Active Substance: NIFEDIPINE
     Indication: Hypertension
     Dosage: UNK
     Route: 065
  5. PREDNISONE [Concomitant]
     Active Substance: PREDNISONE
     Indication: Systemic lupus erythematosus
     Dosage: UNK
     Route: 065
  6. POTASSIUM [Concomitant]
     Active Substance: POTASSIUM
     Indication: Peripheral swelling
     Dosage: UNK, 2 WEEKS
     Route: 065

REACTIONS (6)
  - Hypocalcaemia [Recovering/Resolving]
  - Hypomagnesaemia [Unknown]
  - Hypophagia [Unknown]
  - Sinus tachycardia [Unknown]
  - Ventricular extrasystoles [Unknown]
  - Vision blurred [Unknown]
